FAERS Safety Report 17467384 (Version 6)
Quarter: 2021Q1

REPORT INFORMATION
  Report Type: Spontaneous
  Country: US (occurrence: US)
  Receive Date: 20200227
  Receipt Date: 20210215
  Transmission Date: 20210419
  Serious: No
  Sender: FDA-Public Use
  Company Number: US-PFIZER INC-2020086717

PATIENT
  Age: 64 Year
  Sex: Female

DRUGS (1)
  1. XELJANZ [Suspect]
     Active Substance: TOFACITINIB CITRATE
     Indication: RHEUMATOID ARTHRITIS
     Dosage: 5 MG, 2X/DAY
     Route: 048
     Dates: start: 201912

REACTIONS (6)
  - Fatigue [Unknown]
  - Influenza [Unknown]
  - Therapeutic product effect incomplete [Unknown]
  - Sensitivity to weather change [Unknown]
  - Arthralgia [Unknown]
  - Vitamin D decreased [Unknown]
